FAERS Safety Report 8690056 (Version 4)
Quarter: 2013Q3

REPORT INFORMATION
  Report Type: Spontaneous
  Country: US (occurrence: US)
  Receive Date: 20120727
  Receipt Date: 20130711
  Transmission Date: 20140515
  Serious: Yes (Life-Threatening, Hospitalization, Other)
  Sender: FDA-Public Use
  Company Number: US-ASTRAZENECA-2012SE11259

PATIENT
  Age: 50 Year
  Sex: Female
  Weight: 68 kg

DRUGS (11)
  1. SEROQUEL [Suspect]
     Indication: BIPOLAR II DISORDER
     Route: 048
     Dates: start: 2000
  2. SEROQUEL [Suspect]
     Indication: BIPOLAR II DISORDER
     Route: 048
     Dates: start: 2007
  3. SEROQUEL [Suspect]
     Indication: BIPOLAR II DISORDER
     Route: 048
     Dates: start: 2010, end: 201212
  4. SEROQUEL [Suspect]
     Indication: BIPOLAR II DISORDER
     Route: 048
     Dates: start: 201212, end: 201212
  5. SEROQUEL [Suspect]
     Indication: BIPOLAR II DISORDER
     Route: 048
     Dates: start: 2010
  6. OMEPRAZOLE [Suspect]
     Indication: GASTROOESOPHAGEAL REFLUX DISEASE
     Route: 048
     Dates: start: 201304, end: 201306
  7. KLONOPIN [Concomitant]
     Indication: ANXIETY
     Route: 048
  8. OXYCODONE [Concomitant]
     Indication: PAIN
     Route: 048
  9. MS CONTIN [Concomitant]
     Indication: PAIN
     Route: 048
  10. TRAZADONE [Concomitant]
     Indication: DEPRESSION
  11. RANITIDINE [Concomitant]
     Indication: HYPERCHLORHYDRIA

REACTIONS (23)
  - Suicide attempt [Unknown]
  - Suicidal ideation [Unknown]
  - Arrhythmia [Unknown]
  - Atrial fibrillation [Unknown]
  - Hiatus hernia [Unknown]
  - Anxiety [Unknown]
  - Malaise [Unknown]
  - Depression [Unknown]
  - Insomnia [Unknown]
  - Sleep disorder [Unknown]
  - Confusional state [Unknown]
  - Complex regional pain syndrome [Unknown]
  - Aphagia [Unknown]
  - Abdominal pain upper [Unknown]
  - Breast mass [Unknown]
  - Adverse drug reaction [Unknown]
  - Arthralgia [Unknown]
  - Seasonal affective disorder [Unknown]
  - Gastrooesophageal reflux disease [Unknown]
  - Pain [Unknown]
  - Nightmare [Unknown]
  - Intentional drug misuse [Unknown]
  - Drug dose omission [Unknown]
